FAERS Safety Report 17208319 (Version 8)
Quarter: 2023Q1

REPORT INFORMATION
  Report Type: Report from Study
  Country: JP (occurrence: JP)
  Receive Date: 20191227
  Receipt Date: 20230320
  Transmission Date: 20230418
  Serious: Yes (Hospitalization)
  Sender: FDA-Public Use
  Company Number: JP-ALNYLAM PHARMACEUTICALS, INC.-ALN-2019-001010

PATIENT

DRUGS (42)
  1. ONPATTRO [Suspect]
     Active Substance: PATISIRAN SODIUM
     Indication: Hereditary neuropathic amyloidosis
     Dosage: 16.8 MILLIGRAM
     Route: 041
     Dates: start: 20191126, end: 20191126
  2. ONPATTRO [Suspect]
     Active Substance: PATISIRAN SODIUM
     Dosage: 16.8 MILLIGRAM
     Route: 041
     Dates: start: 20191224, end: 20200114
  3. ONPATTRO [Suspect]
     Active Substance: PATISIRAN SODIUM
     Dosage: 16.2 MILLIGRAM
     Route: 041
     Dates: start: 20200204, end: 20200226
  4. ONPATTRO [Suspect]
     Active Substance: PATISIRAN SODIUM
     Dosage: 15.9 MILLIGRAM
     Route: 041
     Dates: start: 20200318, end: 20200318
  5. ONPATTRO [Suspect]
     Active Substance: PATISIRAN SODIUM
     Dosage: 16.2 MILLIGRAM
     Route: 041
     Dates: start: 20200408, end: 20200519
  6. ONPATTRO [Suspect]
     Active Substance: PATISIRAN SODIUM
     Dosage: 15.0 MILLIGRAM
     Route: 041
     Dates: start: 20200618, end: 20200618
  7. ONPATTRO [Suspect]
     Active Substance: PATISIRAN SODIUM
     Dosage: 15.9 MILLIGRAM
     Route: 041
     Dates: start: 20200701, end: 20200701
  8. ONPATTRO [Suspect]
     Active Substance: PATISIRAN SODIUM
     Dosage: 16.2 MILLIGRAM
     Route: 041
     Dates: start: 20200722, end: 20200722
  9. ONPATTRO [Suspect]
     Active Substance: PATISIRAN SODIUM
     Dosage: 15.6 MILLIGRAM
     Route: 041
     Dates: start: 20200812, end: 20201009
  10. ONPATTRO [Suspect]
     Active Substance: PATISIRAN SODIUM
     Dosage: 16.2 MILLIGRAM
     Route: 041
     Dates: start: 20201102, end: 20201102
  11. ONPATTRO [Suspect]
     Active Substance: PATISIRAN SODIUM
     Dosage: 15.3 MILLIGRAM
     Route: 041
     Dates: start: 20201126, end: 20201126
  12. ONPATTRO [Suspect]
     Active Substance: PATISIRAN SODIUM
     Dosage: 15.9 MILLIGRAM
     Route: 041
     Dates: start: 20201221, end: 20201221
  13. GASTER [Concomitant]
     Active Substance: FAMOTIDINE
     Indication: Prophylaxis
     Dosage: 20 MILLIGRAM, SINGLE
     Route: 041
     Dates: start: 20191126, end: 20191126
  14. GASTER [Concomitant]
     Active Substance: FAMOTIDINE
     Indication: Prophylaxis
     Dosage: 20 MILLIGRAM, SINGLE
     Route: 065
     Dates: start: 20191224
  15. POLARAMINE [Concomitant]
     Active Substance: DEXCHLORPHENIRAMINE MALEATE
     Indication: Prophylaxis
     Dosage: 5 MILLIGRAM, SINGLE
     Route: 042
     Dates: start: 20191126, end: 20191126
  16. POLARAMINE [Concomitant]
     Active Substance: DEXCHLORPHENIRAMINE MALEATE
     Indication: Prophylaxis
     Dosage: 5 MILLIGRAM, SINGLE
     Route: 065
     Dates: start: 20191224
  17. DEXAMETHASONE SODIUM PHOSPHATE [Concomitant]
     Active Substance: DEXAMETHASONE SODIUM PHOSPHATE
     Indication: Prophylaxis
     Dosage: 9.9 MILLIGRAM, SINGLE
     Route: 042
     Dates: start: 20191126, end: 20191126
  18. DEXAMETHASONE SODIUM PHOSPHATE [Concomitant]
     Active Substance: DEXAMETHASONE SODIUM PHOSPHATE
     Indication: Prophylaxis
     Dosage: 9.9 MILLIGRAM, SINGLE
     Route: 065
     Dates: start: 20191224
  19. CALONAL [Concomitant]
     Active Substance: ACETAMINOPHEN
     Indication: Prophylaxis
     Dosage: 500 MILLIGRAM
     Route: 048
     Dates: start: 20191126
  20. CALONAL [Concomitant]
     Active Substance: ACETAMINOPHEN
     Dosage: 500 MILLIGRAM, SINGLE
     Route: 065
     Dates: start: 20191224
  21. VITAMINS [Concomitant]
     Active Substance: VITAMINS
     Indication: Vitamin supplementation
     Dosage: 1 GRAM, SINGLE
     Route: 048
     Dates: start: 20191126
  22. VITAMINS [Concomitant]
     Active Substance: VITAMINS
     Indication: Prophylaxis
     Dosage: 1 GRAM, QD
     Route: 065
  23. NEXIUM [Concomitant]
     Active Substance: ESOMEPRAZOLE MAGNESIUM
     Indication: Hereditary neuropathic amyloidosis
     Dosage: 20 MILLIGRAM
     Route: 065
  24. NEXIUM [Concomitant]
     Active Substance: ESOMEPRAZOLE MAGNESIUM
     Indication: Abdominal discomfort
     Dosage: 20 MILLIGRAM, QD
     Route: 065
  25. MIDODRINE HYDROCHLORIDE [Concomitant]
     Active Substance: MIDODRINE HYDROCHLORIDE
     Indication: Hereditary neuropathic amyloidosis
     Dosage: 1 MILLIGRAM, BID
     Route: 065
  26. MIDODRINE HYDROCHLORIDE [Concomitant]
     Active Substance: MIDODRINE HYDROCHLORIDE
     Indication: Abdominal discomfort
     Dosage: 2 MILLIGRAM, TWICE
     Route: 065
  27. MIDODRINE HYDROCHLORIDE [Concomitant]
     Active Substance: MIDODRINE HYDROCHLORIDE
     Dosage: 2 MILLIGRAM, BID
     Route: 065
  28. TEPRENONE [Concomitant]
     Active Substance: TEPRENONE
     Indication: Hereditary neuropathic amyloidosis
     Dosage: 50 MILLIGRAM, TID
     Route: 048
  29. TEPRENONE [Concomitant]
     Active Substance: TEPRENONE
     Indication: Abdominal discomfort
  30. TEPRENONE [Concomitant]
     Active Substance: TEPRENONE
     Indication: Hereditary neuropathic amyloidosis
     Dosage: 50 MILLIGRAM, TID
     Route: 048
  31. MOSAPRIDE CITRATE [Concomitant]
     Active Substance: MOSAPRIDE CITRATE
     Indication: Hereditary neuropathic amyloidosis
     Dosage: 5 MILLIGRAM, THREE TIMES
     Route: 065
  32. MOSAPRIDE CITRATE [Concomitant]
     Active Substance: MOSAPRIDE CITRATE
     Indication: Abdominal discomfort
     Dosage: 5 MILLIGRAM, TID
     Route: 065
  33. TOVIAZ [Concomitant]
     Active Substance: FESOTERODINE FUMARATE
     Indication: Hereditary neuropathic amyloidosis
     Dosage: 4 MILLIGRAM
     Route: 048
  34. TOVIAZ [Concomitant]
     Active Substance: FESOTERODINE FUMARATE
     Indication: Abdominal discomfort
     Dosage: 4 MILLIGRAM, QD
     Route: 065
  35. MOSAPRIDE CITRATE [Concomitant]
     Active Substance: MOSAPRIDE CITRATE
     Indication: Hereditary neuropathic amyloidosis
     Dosage: 5 MILLIGRAM, TID
     Route: 048
  36. MOSAPRIDE CITRATE [Concomitant]
     Active Substance: MOSAPRIDE CITRATE
     Indication: Abdominal discomfort
  37. ELOBIXIBAT [Concomitant]
     Active Substance: ELOBIXIBAT
     Indication: Hereditary neuropathic amyloidosis
     Dosage: 5 MILLIGRAM, BID
     Route: 048
  38. ELOBIXIBAT [Concomitant]
     Active Substance: ELOBIXIBAT
     Indication: Abdominal discomfort
     Dosage: 10 MILLIGRAM, QD
     Route: 065
  39. Ozex [Concomitant]
     Indication: Infected dermal cyst
     Dosage: 150 MILLIGRAM, TID
     Route: 065
     Dates: end: 20191225
  40. VESICARE [Concomitant]
     Active Substance: SOLIFENACIN SUCCINATE
     Indication: Hereditary neuropathic amyloidosis
     Dosage: 2.5 MILLIGRAM
     Route: 048
  41. VESICARE [Concomitant]
     Active Substance: SOLIFENACIN SUCCINATE
     Indication: Abdominal discomfort
     Dosage: 2.5 MILLIGRAM, QD
     Route: 065
  42. NAUZELIN [Concomitant]
     Active Substance: DOMPERIDONE
     Indication: Hereditary neuropathic amyloidosis
     Dosage: 60 MILLIGRAM, PRN
     Route: 065

REACTIONS (12)
  - Infusion related reaction [Recovering/Resolving]
  - Vomiting [Recovering/Resolving]
  - White blood cell count increased [Recovered/Resolved]
  - Nausea [Recovered/Resolved]
  - Nausea [Recovered/Resolved]
  - Abdominal pain upper [Recovered/Resolved]
  - Chest discomfort [Recovered/Resolved]
  - Vomiting [Recovering/Resolving]
  - Urticaria [Recovering/Resolving]
  - Erythema [Recovering/Resolving]
  - Cough [Recovering/Resolving]
  - Nausea [Recovered/Resolved]

NARRATIVE: CASE EVENT DATE: 20191224
